FAERS Safety Report 9652969 (Version 3)
Quarter: 2014Q2

REPORT INFORMATION
  Report Type: Spontaneous
  Country: US (occurrence: US)
  Receive Date: 20131029
  Receipt Date: 20140414
  Transmission Date: 20141212
  Serious: No
  Sender: FDA-Public Use
  Company Number: US-BIOGENIDEC-2013BI077852

PATIENT
  Age: 47 Year
  Sex: Female

DRUGS (12)
  1. TECFIDERA [Suspect]
     Indication: MULTIPLE SCLEROSIS
     Route: 048
     Dates: start: 20130702
  2. ALEVE [Concomitant]
     Indication: PRODUCT USED FOR UNKNOWN INDICATION
  3. BACLOFEN [Concomitant]
     Indication: PRODUCT USED FOR UNKNOWN INDICATION
  4. CALCIUM-MAGNESIUM-VITAMIN D [Concomitant]
     Indication: PRODUCT USED FOR UNKNOWN INDICATION
  5. DOC-Q-LACE [Concomitant]
  6. IBUPROFEN [Concomitant]
  7. LORAZEPAM [Concomitant]
  8. METFORMIN HCL [Concomitant]
  9. NALTREXONE HCL [Concomitant]
  10. NEURONTIN [Concomitant]
  11. NORTRIPTYLINE HCL [Concomitant]
  12. OMEGA 3 [Concomitant]

REACTIONS (6)
  - Decreased appetite [Unknown]
  - Migraine [Unknown]
  - Alopecia [Unknown]
  - Flushing [Unknown]
  - Nausea [Unknown]
  - Abdominal discomfort [Unknown]
